FAERS Safety Report 4300818-X (Version None)
Quarter: 2004Q1

REPORT INFORMATION
  Report Type: 
  Country: None (occurrence: None)
  Receive Date: 20040219
  Receipt Date: 20040206
  Transmission Date: 20041129
  Serious: No
  Sender: FDA-Public Use
  Company Number: 2004CG00256

PATIENT
  Sex: Female

DRUGS (2)
  1. NAROPIN [Suspect]
     Indication: LOCAL ANAESTHESIA
     Dosage: 40 ML ONCE IF
     Dates: start: 20040205, end: 20040205
  2. PROPOFOL [Concomitant]

REACTIONS (4)
  - ANAESTHETIC COMPLICATION [None]
  - MOTOR DYSFUNCTION [None]
  - PARAPLEGIA [None]
  - SENSORY LOSS [None]
